FAERS Safety Report 21631644 (Version 2)
Quarter: 2022Q4

REPORT INFORMATION
  Report Type: Spontaneous
  Country: FR (occurrence: FR)
  Receive Date: 20221123
  Receipt Date: 20221129
  Transmission Date: 20230112
  Serious: Yes (Death)
  Sender: FDA-Public Use
  Company Number: FR-JNJFOC-20221146766

PATIENT

DRUGS (1)
  1. TECLISTAMAB [Suspect]
     Active Substance: TECLISTAMAB
     Indication: Plasma cell myeloma
     Route: 065

REACTIONS (1)
  - Plasma cell myeloma [Fatal]
